FAERS Safety Report 19224483 (Version 1)
Quarter: 2021Q2

REPORT INFORMATION
  Report Type: Spontaneous
  Country: CA (occurrence: CA)
  Receive Date: 20210505
  Receipt Date: 20210505
  Transmission Date: 20210717
  Serious: Yes (Other)
  Sender: FDA-Public Use
  Company Number: CA-BIOMARINAP-CA-2021-136295

PATIENT
  Age: 9 Year
  Sex: Male
  Weight: 24 kg

DRUGS (5)
  1. BENADRYL [Concomitant]
     Active Substance: DIPHENHYDRAMINE HYDROCHLORIDE
     Indication: PREMEDICATION
     Dosage: 15 MILLIGRAM, SINGLE
     Route: 042
  2. IBUPROFEN. [Concomitant]
     Active Substance: IBUPROFEN
     Indication: PREMEDICATION
     Dosage: 100 MILLIGRAM, SINGLE
     Route: 048
  3. GRAVOL [Concomitant]
     Active Substance: DIMENHYDRINATE
     Indication: PREMEDICATION
     Dosage: 15 MILLIGRAM, SINGLE
     Route: 048
  4. VIMIZIM [Suspect]
     Active Substance: ELOSULFASE ALFA
     Indication: MUCOPOLYSACCHARIDOSIS IV
     Dosage: 2 MILLIGRAM/KILOGRAM, QW
     Route: 042
     Dates: start: 201412
  5. VITAMIN D [Concomitant]
     Active Substance: VITAMIN D NOS
     Indication: BONE DEFORMITY
     Dosage: UNK, PRN
     Route: 048

REACTIONS (3)
  - Knee operation [Recovering/Resolving]
  - Procedural pain [Not Recovered/Not Resolved]
  - Vomiting [Unknown]

NARRATIVE: CASE EVENT DATE: 202104
